FAERS Safety Report 7232758-0 (Version None)
Quarter: 2011Q1

REPORT INFORMATION
  Report Type: 
  Country: None (occurrence: None)
  Receive Date: 20110106
  Receipt Date: 20110103
  Transmission Date: 20110831
  Serious: Yes (Other)
  Sender: FDA-Public Use
  Company Number: 2011SP000074

PATIENT
  Age: 96 Year
  Sex: Male

DRUGS (4)
  1. NASONEX [Suspect]
     Indication: PRODUCT USED FOR UNKNOWN INDICATION
     Dates: start: 20101231
  2. HYPOTENSOR [Concomitant]
  3. SEROPLEX [Concomitant]
  4. FLECAINE [Concomitant]

REACTIONS (1)
  - HALLUCINATION [None]
